FAERS Safety Report 20500008 (Version 1)
Quarter: 2022Q1

REPORT INFORMATION
  Report Type: Spontaneous
  Country: US (occurrence: US)
  Receive Date: 20220222
  Receipt Date: 20220222
  Transmission Date: 20220423
  Serious: No
  Sender: FDA-Public Use
  Company Number: US-UCBSA-2021047742

PATIENT
  Age: 45 Year
  Sex: Male

DRUGS (5)
  1. LEVETIRACETAM [Suspect]
     Active Substance: LEVETIRACETAM
     Indication: Seizure prophylaxis
     Dosage: 500 MILLIGRAM, 2X/DAY (BID)
  2. LEVETIRACETAM [Suspect]
     Active Substance: LEVETIRACETAM
     Indication: Off label use
  3. LORAZEPAM [Concomitant]
     Active Substance: LORAZEPAM
     Indication: Product used for unknown indication
     Dosage: 4 MILLIGRAM
     Route: 042
  4. ESMOLOL [Concomitant]
     Active Substance: ESMOLOL HYDROCHLORIDE
     Indication: Product used for unknown indication
     Dosage: 50 MCG/KG/MIN
     Route: 042
  5. NIMODIPINE [Concomitant]
     Active Substance: NIMODIPINE
     Indication: Product used for unknown indication
     Dosage: 60 MILLIGRAM Q4 HOURLY

REACTIONS (1)
  - No adverse event [Unknown]
